FAERS Safety Report 14699744 (Version 3)
Quarter: 2018Q2

REPORT INFORMATION
  Report Type: Report from Study
  Country: US (occurrence: US)
  Receive Date: 20180330
  Receipt Date: 20180419
  Transmission Date: 20180711
  Serious: Yes (Hospitalization, Other)
  Sender: FDA-Public Use
  Company Number: US-PFIZER INC-2018124808

PATIENT
  Age: 44 Year
  Sex: Male

DRUGS (1)
  1. SUTENT [Suspect]
     Active Substance: SUNITINIB MALATE
     Indication: PANCREATIC NEUROENDOCRINE TUMOUR
     Dosage: 37.5 MG, 1X/DAY
     Route: 048
     Dates: start: 20180308, end: 20180323

REACTIONS (14)
  - Pain in extremity [Unknown]
  - Dysstasia [Unknown]
  - Gait disturbance [Unknown]
  - Decreased appetite [Unknown]
  - Somnolence [Unknown]
  - Fatigue [Unknown]
  - Skin exfoliation [Unknown]
  - Erythema [Unknown]
  - Back pain [Unknown]
  - Peripheral swelling [Unknown]
  - Chills [Unknown]
  - Blister [Unknown]
  - Pain [Unknown]
  - Chest pain [Unknown]

NARRATIVE: CASE EVENT DATE: 201803
